FAERS Safety Report 7909848-X (Version None)
Quarter: 2011Q4

REPORT INFORMATION
  Report Type: 
  Country: None (occurrence: None)
  Receive Date: 20111111
  Receipt Date: 20111109
  Transmission Date: 20120403
  Serious: Yes (Other)
  Sender: FDA-Public Use
  Company Number: US-MERCK-1108USA00638

PATIENT
  Age: 57 Year
  Sex: Female

DRUGS (10)
  1. CALCIUM (UNSPECIFIED) [Concomitant]
     Route: 065
  2. OMEGA-3 MARINE TRIGLYCERIDES [Concomitant]
     Route: 065
  3. METHOTREXATE [Concomitant]
     Route: 065
  4. VITAMINS (UNSPECIFIED) [Concomitant]
     Route: 065
  5. PLAQUENIL [Concomitant]
     Route: 065
  6. ENBREL [Concomitant]
     Route: 065
     Dates: start: 20010101
  7. VITAMIN B COMPLEX [Concomitant]
     Route: 065
  8. FOSAMAX [Suspect]
     Indication: OSTEOPOROSIS
     Route: 048
     Dates: start: 20010101, end: 20090101
  9. VITAMIN D (UNSPECIFIED) [Concomitant]
     Route: 065
  10. RECLAST [Concomitant]
     Indication: OSTEOPOROSIS
     Route: 065
     Dates: start: 20090101, end: 20100101

REACTIONS (5)
  - IMPAIRED HEALING [None]
  - TOOTH DISORDER [None]
  - ADVERSE EVENT [None]
  - FEMUR FRACTURE [None]
  - BLOOD CHOLESTEROL INCREASED [None]
